FAERS Safety Report 8101390-9 (Version None)
Quarter: 2012Q1

REPORT INFORMATION
  Report Type: 
  Country: None (occurrence: None)
  Receive Date: 20120129
  Receipt Date: 20110907
  Transmission Date: 20120608
  Serious: No
  Sender: FDA-Public Use
  Company Number: US-ABBOTT-11P-163-0852324-00

PATIENT
  Age: 63 Year
  Sex: Female

DRUGS (3)
  1. SEROQUEL [Concomitant]
     Indication: PRODUCT USED FOR UNKNOWN INDICATION
  2. HUMIRA [Suspect]
     Dates: start: 20110801
  3. HUMIRA [Suspect]
     Indication: PSORIASIS
     Dates: end: 20110601

REACTIONS (4)
  - ERYTHEMA [None]
  - HEPATIC ENZYME INCREASED [None]
  - PRURITUS [None]
  - TENDERNESS [None]
